FAERS Safety Report 5499945-3 (Version None)
Quarter: 2007Q4

REPORT INFORMATION
  Report Type: 
  Country: None (occurrence: None)
  Receive Date: 20071026
  Receipt Date: 20071016
  Transmission Date: 20080405
  Serious: Yes (Other)
  Sender: FDA-Public Use
  Company Number: BR-PFIZER INC-2007088467

PATIENT
  Sex: Female
  Weight: 58 kg

DRUGS (2)
  1. CHAMPIX [Suspect]
     Indication: EX-SMOKER
     Route: 048
     Dates: start: 20071001, end: 20071008
  2. ESTRIOL [Concomitant]
     Dates: start: 20050101, end: 20071016

REACTIONS (2)
  - BALANCE DISORDER [None]
  - TONGUE DISORDER [None]
